FAERS Safety Report 4559825-4 (Version None)
Quarter: 2005Q1

REPORT INFORMATION
  Report Type: 
  Country: None (occurrence: None)
  Receive Date: 20050124
  Receipt Date: 20040408
  Transmission Date: 20050727
  Serious: Yes (Hospitalization, Other)
  Sender: FDA-Public Use
  Company Number: US-MERCK-0404USA00963

PATIENT
  Age: 46 Year
  Sex: Male
  Weight: 98 kg

DRUGS (10)
  1. VIOXX [Suspect]
     Indication: OSTEOARTHRITIS
     Route: 048
     Dates: start: 20000622, end: 20011010
  2. VIOXX [Suspect]
     Route: 048
     Dates: start: 20011105, end: 20020312
  3. PRILOSEC [Concomitant]
     Indication: GASTROOESOPHAGEAL REFLUX DISEASE
     Route: 048
     Dates: start: 20001101
  4. TYLENOL [Concomitant]
     Route: 065
  5. INDERAL [Concomitant]
     Indication: TREMOR
     Route: 065
     Dates: start: 19980601, end: 19981001
  6. LIPITOR [Concomitant]
     Route: 048
     Dates: start: 20000301, end: 20001101
  7. LIPITOR [Concomitant]
     Route: 065
     Dates: start: 20020301
  8. ZITHROMAX [Concomitant]
     Route: 065
     Dates: start: 20000701
  9. ZANTAC [Concomitant]
     Route: 048
     Dates: start: 20000601
  10. NITROSTAT [Concomitant]
     Route: 060
     Dates: start: 19990901

REACTIONS (10)
  - ABDOMINAL PAIN [None]
  - ACUTE MYOCARDIAL INFARCTION [None]
  - ANGINA UNSTABLE [None]
  - ANXIETY [None]
  - CARDIAC FAILURE CONGESTIVE [None]
  - CAROTID ARTERY DISEASE [None]
  - CORONARY ARTERY DISEASE [None]
  - DIARRHOEA [None]
  - ISCHAEMIC CARDIOMYOPATHY [None]
  - MIXED HYPERLIPIDAEMIA [None]
